FAERS Safety Report 9565322 (Version 1)
Quarter: 2013Q3

REPORT INFORMATION
  Report Type: Spontaneous
  Country: AR (occurrence: AR)
  Receive Date: 20130930
  Receipt Date: 20130930
  Transmission Date: 20140515
  Serious: Yes (Other)
  Sender: FDA-Public Use
  Company Number: AR-RANBAXY-2013R1-73695

PATIENT
  Age: 51 Year
  Sex: Female

DRUGS (1)
  1. HYDROCHLOROTHIAZIDE [Suspect]
     Indication: DIURETIC THERAPY
     Route: 065

REACTIONS (2)
  - Hyponatraemia [Unknown]
  - Rhabdomyolysis [Unknown]
